FAERS Safety Report 18871385 (Version 1)
Quarter: 2021Q1

REPORT INFORMATION
  Report Type: Spontaneous
  Country: US (occurrence: US)
  Receive Date: 20210209
  Receipt Date: 20210209
  Transmission Date: 20210420
  Serious: Yes (Hospitalization)
  Sender: FDA-Public Use
  Company Number: None

PATIENT
  Sex: Female

DRUGS (26)
  1. FISH OIL [Concomitant]
     Active Substance: FISH OIL
  2. LASIX [Concomitant]
     Active Substance: FUROSEMIDE
  3. MACROBID [Concomitant]
     Active Substance: NITROFURANTOIN\NITROFURANTOIN MONOHYDRATE
  4. SYMBICORT [Concomitant]
     Active Substance: BUDESONIDE\FORMOTEROL FUMARATE DIHYDRATE
  5. TOLAZOLINE [Concomitant]
     Active Substance: TOLAZOLINE
  6. DIMETHYL FUM [Suspect]
     Active Substance: DIMETHYL FUMARATE
     Indication: MULTIPLE SCLEROSIS
     Route: 048
     Dates: start: 20201117
  7. LOPERAMIDE [Concomitant]
     Active Substance: LOPERAMIDE
  8. TYLENOL [Concomitant]
     Active Substance: ACETAMINOPHEN
  9. BACLOFEN. [Concomitant]
     Active Substance: BACLOFEN
  10. BIOTIN [Concomitant]
     Active Substance: BIOTIN
  11. CRANBERRY. [Concomitant]
     Active Substance: CRANBERRY
  12. FLUTICASONE. [Concomitant]
     Active Substance: FLUTICASONE
  13. LYRICA [Concomitant]
     Active Substance: PREGABALIN
  14. PREGABALIN, [Concomitant]
  15. ATORVENT [Concomitant]
  16. PENTOXIFYL [Concomitant]
  17. VITAMIN E [Concomitant]
     Active Substance: .ALPHA.-TOCOPHEROL
  18. ALENDRONATGE [Concomitant]
  19. FLUOROURACIL. [Concomitant]
     Active Substance: FLUOROURACIL
  20. GLYCERIN. [Concomitant]
     Active Substance: GLYCERIN
  21. MULTIPLE VITAMIN [Concomitant]
     Active Substance: VITAMINS
  22. SIMBRINZA [Concomitant]
     Active Substance: BRIMONIDINE TARTRATE\BRINZOLAMIDE
  23. SPIRIVA [Concomitant]
     Active Substance: TIOTROPIUM BROMIDE MONOHYDRATE
  24. OXYBITYININ [Concomitant]
  25. PULMCORT [Concomitant]
  26. VITAMIN D [Concomitant]
     Active Substance: VITAMIN D NOS

REACTIONS (3)
  - Musculoskeletal stiffness [None]
  - Neuralgia [None]
  - Cerebrovascular accident [None]
